FAERS Safety Report 18364017 (Version 2)
Quarter: 2020Q4

REPORT INFORMATION
  Report Type: Spontaneous
  Country: IT (occurrence: IT)
  Receive Date: 20201009
  Receipt Date: 20201019
  Transmission Date: 20210114
  Serious: Yes (Other)
  Sender: FDA-Public Use
  Company Number: IT-ROCHE-2692531

PATIENT
  Age: 30 Year
  Sex: Male

DRUGS (2)
  1. ALCOVER [Suspect]
     Active Substance: SODIUM OXYBATE
     Indication: ALCOHOL WITHDRAWAL SYNDROME
     Route: 048
     Dates: start: 20181021, end: 20181021
  2. VALIUM [Suspect]
     Active Substance: DIAZEPAM
     Indication: ALCOHOL WITHDRAWAL SYNDROME
     Route: 048
     Dates: start: 20181021, end: 20181021

REACTIONS (3)
  - Drug abuse [Unknown]
  - Alcohol abuse [Recovering/Resolving]
  - Loss of consciousness [Recovering/Resolving]

NARRATIVE: CASE EVENT DATE: 20181021
